FAERS Safety Report 15072325 (Version 1)
Quarter: 2018Q2

REPORT INFORMATION
  Report Type: Report from Study
  Country: US (occurrence: US)
  Receive Date: 20180626
  Receipt Date: 20180626
  Transmission Date: 20180711
  Serious: No
  Sender: FDA-Public Use
  Company Number: US-AMGEN-USASL2017010544

PATIENT
  Age: 69 Year
  Sex: Female
  Weight: 75.74 kg

DRUGS (1)
  1. PROLIA [Suspect]
     Active Substance: DENOSUMAB
     Indication: OSTEOPOROSIS POSTMENOPAUSAL
     Dosage: 60 MG, Q6MO
     Route: 058
     Dates: start: 20160916

REACTIONS (7)
  - Adverse drug reaction [Unknown]
  - Lymphocyte count decreased [Unknown]
  - Urinary sediment present [Unknown]
  - Blood urea increased [Unknown]
  - Rash [Recovered/Resolved]
  - Urine oxalate [Unknown]
  - Monocyte count increased [Unknown]

NARRATIVE: CASE EVENT DATE: 20160913
